FAERS Safety Report 18884561 (Version 1)
Quarter: 2021Q1

REPORT INFORMATION
  Report Type: Spontaneous
  Country: US (occurrence: US)
  Receive Date: 20210212
  Receipt Date: 20210212
  Transmission Date: 20210420
  Serious: No
  Sender: FDA-Public Use
  Company Number: US-RECORDATI RARE DISEASES-2106678

PATIENT
  Age: 85 Year
  Sex: Female

DRUGS (2)
  1. CYSTADANE [Suspect]
     Active Substance: BETAINE
     Indication: HEPATIC ENCEPHALOPATHY
     Dates: start: 20201112
  2. CYSTADANE [Suspect]
     Active Substance: BETAINE
     Indication: OFF LABEL USE
     Dates: start: 20201112

REACTIONS (5)
  - Disorientation [Unknown]
  - Feeling abnormal [Unknown]
  - Off label use [Unknown]
  - Anxiety [Unknown]
  - Insomnia [Unknown]

NARRATIVE: CASE EVENT DATE: 202011
